FAERS Safety Report 7579101-5 (Version None)
Quarter: 2011Q2

REPORT INFORMATION
  Report Type: 
  Country: None (occurrence: None)
  Receive Date: 20110628
  Receipt Date: 20110622
  Transmission Date: 20111010
  Serious: Yes (Other)
  Sender: FDA-Public Use
  Company Number: US-PFIZER INC-2011139993

PATIENT
  Age: 50 Year
  Sex: Female

DRUGS (6)
  1. NORVASC [Suspect]
  2. SITAGLIPTIN AND METFORMIN HYDROCHLORIDE [Concomitant]
  3. ZIAC [Concomitant]
  4. ACTOS [Concomitant]
  5. SULAR [Suspect]
     Dosage: PROLONGED RELEASE TABLET
  6. LISINOPRIL [Concomitant]

REACTIONS (1)
  - ISCHAEMIC STROKE [None]
